FAERS Safety Report 6369581-5 (Version None)
Quarter: 2009Q3

REPORT INFORMATION
  Report Type: 
  Country: None (occurrence: None)
  Receive Date: 20090923
  Receipt Date: 20090911
  Transmission Date: 20100115
  Serious: Yes (Hospitalization)
  Sender: FDA-Public Use
  Company Number: PHEH2009US10860

PATIENT
  Sex: Female

DRUGS (6)
  1. RECLAST [Suspect]
     Dosage: UNK
     Dates: start: 20080216, end: 20080216
  2. RECLAST [Suspect]
     Dosage: UNK
     Dates: start: 20090217, end: 20090217
  3. ENABLEX [Suspect]
     Dosage: 7.5 MG, UNK
  4. ANALGESICS [Concomitant]
  5. ANTIHYPERTENSIVE DRUGS [Concomitant]
  6. TYLENOL (CAPLET) [Concomitant]

REACTIONS (4)
  - FALL [None]
  - HEADACHE [None]
  - MULTIPLE FRACTURES [None]
  - TOOTH FRACTURE [None]
